FAERS Safety Report 12957466 (Version 1)
Quarter: 2016Q4

REPORT INFORMATION
  Report Type: Spontaneous
  Country: US (occurrence: US)
  Receive Date: 20161118
  Receipt Date: 20161118
  Transmission Date: 20170207
  Serious: No
  Sender: FDA-Public Use
  Company Number: US-ASTRAZENECA-2016SF18408

PATIENT
  Age: 25758 Day
  Sex: Female

DRUGS (3)
  1. DALIRESP [Suspect]
     Active Substance: ROFLUMILAST
     Indication: CHRONIC OBSTRUCTIVE PULMONARY DISEASE
     Route: 055
     Dates: start: 201610
  2. MAGNESIUM [Concomitant]
     Active Substance: MAGNESIUM
  3. POTASSIUM [Concomitant]
     Active Substance: POTASSIUM

REACTIONS (10)
  - Muscle spasms [Unknown]
  - Decreased appetite [Unknown]
  - Weight decreased [Unknown]
  - Drug dose omission [Unknown]
  - Activities of daily living impaired [Unknown]
  - Back pain [Unknown]
  - Diarrhoea [Unknown]
  - Dysstasia [Unknown]
  - Tremor [Unknown]
  - Insomnia [Unknown]

NARRATIVE: CASE EVENT DATE: 20161107
